FAERS Safety Report 6482527-4 (Version None)
Quarter: 2009Q4

REPORT INFORMATION
  Report Type: 
  Country: None (occurrence: None)
  Receive Date: 20091208
  Receipt Date: 20091016
  Transmission Date: 20100525
  Serious: No
  Sender: FDA-Public Use
  Company Number: US-AMGEN-TCS366267

PATIENT
  Sex: Female

DRUGS (2)
  1. ENBREL [Suspect]
     Indication: RHEUMATOID ARTHRITIS
     Dates: start: 20050812
  2. ARAVA [Concomitant]

REACTIONS (7)
  - ALOPECIA [None]
  - ASTHENIA [None]
  - COAGULOPATHY [None]
  - CONTUSION [None]
  - DIZZINESS [None]
  - FACIAL PAIN [None]
  - RHEUMATOID ARTHRITIS [None]
